FAERS Safety Report 8474951-5 (Version None)
Quarter: 2012Q2

REPORT INFORMATION
  Report Type: 
  Country: None (occurrence: None)
  Receive Date: 20120628
  Receipt Date: 20120622
  Transmission Date: 20120825
  Serious: Yes (Hospitalization)
  Sender: FDA-Public Use
  Company Number: PHEH2012US012536

PATIENT
  Sex: Male
  Weight: 99.773 kg

DRUGS (5)
  1. METFORMIN HCL [Concomitant]
     Dosage: 500 MG DAILY
  2. METOPROLOL TARTRATE [Suspect]
     Indication: HYPERTENSION
     Dosage: 50 MG, BID
  3. CARDIAZEM [Suspect]
     Indication: HYPERTENSION
     Dosage: 240 MG, BID
  4. GLIMEPIRIDE [Concomitant]
     Indication: TYPE 2 DIABETES MELLITUS
     Dosage: 5 MG, BID
  5. DIOVAN [Suspect]
     Indication: HYPERTENSION
     Dosage: 320 MG DAILY

REACTIONS (2)
  - ATRIAL FIBRILLATION [None]
  - ATRIAL FLUTTER [None]
